FAERS Safety Report 19082108 (Version 2)
Quarter: 2021Q2

REPORT INFORMATION
  Report Type: Spontaneous
  Country: BR (occurrence: BR)
  Receive Date: 20210401
  Receipt Date: 20210622
  Transmission Date: 20210717
  Serious: No
  Sender: FDA-Public Use
  Company Number: BR-TOLMAR, INC.-21BR026047

PATIENT
  Sex: Female

DRUGS (1)
  1. ELIGARD [Suspect]
     Active Substance: LEUPROLIDE ACETATE
     Indication: PRECOCIOUS PUBERTY
     Dosage: 45 MG
     Dates: start: 20210309

REACTIONS (2)
  - Injection site haematoma [Unknown]
  - Injection site pain [Unknown]

NARRATIVE: CASE EVENT DATE: 20210309
